FAERS Safety Report 20814080 (Version 3)
Quarter: 2022Q2

REPORT INFORMATION
  Report Type: Spontaneous
  Country: SG (occurrence: SG)
  Receive Date: 20220511
  Receipt Date: 20220523
  Transmission Date: 20220721
  Serious: Yes (Other)
  Sender: FDA-Public Use
  Company Number: ALC2022SG002147

PATIENT
  Age: 88 Year
  Sex: Female

DRUGS (22)
  1. ATROPINE SULFATE [Suspect]
     Active Substance: ATROPINE SULFATE
     Indication: Open angle glaucoma
     Dosage: UNK
     Route: 065
  2. ATROPINE SULFATE [Suspect]
     Active Substance: ATROPINE SULFATE
     Indication: Intraocular pressure decreased
  3. TIMOLOL [Suspect]
     Active Substance: TIMOLOL
     Indication: Open angle glaucoma
     Dosage: UNK
     Route: 065
  4. LATANOPROST [Suspect]
     Active Substance: LATANOPROST
     Indication: Open angle glaucoma
     Dosage: UNK
     Route: 065
  5. CHLORAMPHENICOL [Suspect]
     Active Substance: CHLORAMPHENICOL
     Indication: Open angle glaucoma
     Dosage: UNK
     Route: 065
  6. DEXAMETHASONE [Suspect]
     Active Substance: DEXAMETHASONE
     Indication: Open angle glaucoma
     Dosage: UNK
     Route: 031
  7. TRAVATAN Z [Suspect]
     Active Substance: TRAVOPROST
     Indication: Open angle glaucoma
     Dosage: UNK
     Route: 065
  8. TRAVATAN Z [Suspect]
     Active Substance: TRAVOPROST
     Indication: Intraocular pressure decreased
  9. FLUOROURACIL [Suspect]
     Active Substance: FLUOROURACIL
     Indication: Open angle glaucoma
     Dosage: 50 MG/ML (0.1ML);
     Route: 065
  10. FLUOROURACIL [Suspect]
     Active Substance: FLUOROURACIL
     Indication: Bleb revision
     Dosage: 5AT POST-OPERATIVE MONTH 3,0 MG/ML (0.1ML)
     Route: 065
  11. MITOMYCIN [Suspect]
     Active Substance: MITOMYCIN
     Indication: Open angle glaucoma
     Dosage: 0.3 MG/ML (0.1ML)
     Route: 065
  12. ACETAZOLAMIDE [Suspect]
     Active Substance: ACETAZOLAMIDE
     Indication: Open angle glaucoma
     Dosage: UNK
     Route: 048
  13. ACETAZOLAMIDE [Suspect]
     Active Substance: ACETAZOLAMIDE
     Indication: Intraocular pressure decreased
     Dosage: UNK
     Route: 042
  14. BRIMONIDINE [Suspect]
     Active Substance: BRIMONIDINE TARTRATE
     Indication: Open angle glaucoma
     Dosage: UNK
     Route: 065
  15. BRIMONIDINE [Suspect]
     Active Substance: BRIMONIDINE TARTRATE
     Indication: Intraocular pressure decreased
  16. CEFTAZIDIME [Suspect]
     Active Substance: CEFTAZIDIME
     Indication: Open angle glaucoma
     Dosage: UNK
     Route: 031
  17. PREDNISOLONE [Concomitant]
     Active Substance: PREDNISOLONE
     Indication: Product used for unknown indication
     Dosage: UNK
     Route: 065
  18. PREDNISOLONE [Concomitant]
     Active Substance: PREDNISOLONE
     Dosage: UNK
     Route: 065
  19. VANCOMYCIN [Concomitant]
     Active Substance: VANCOMYCIN
     Indication: Product used for unknown indication
     Dosage: UNK
     Route: 031
  20. AMIKACIN [Concomitant]
     Active Substance: AMIKACIN
     Indication: Product used for unknown indication
     Dosage: UNK
     Route: 065
  21. CLINDAMYCIN [Concomitant]
     Active Substance: CLINDAMYCIN
     Indication: Product used for unknown indication
     Dosage: UNK
     Route: 065
  22. GENTAMICIN [Concomitant]
     Active Substance: GENTAMICIN
     Indication: Product used for unknown indication
     Dosage: UNK
     Route: 065

REACTIONS (4)
  - Endophthalmitis [Unknown]
  - Blepharitis [Unknown]
  - Product use in unapproved indication [Unknown]
  - Therapeutic response decreased [Unknown]
